FAERS Safety Report 12380301 (Version 1)
Quarter: 2016Q2

REPORT INFORMATION
  Report Type: Spontaneous
  Country: US (occurrence: None)
  Receive Date: 20160517
  Receipt Date: 20160517
  Transmission Date: 20160815
  Serious: No
  Sender: FDA-Public Use
  Company Number: None

PATIENT
  Sex: Male

DRUGS (4)
  1. LANTUS [Suspect]
     Active Substance: INSULIN GLARGINE
  2. VICTOZA [Suspect]
     Active Substance: LIRAGLUTIDE
  3. TOUJEO [Suspect]
     Active Substance: INSULIN GLARGINE
  4. HUMALOG [Suspect]
     Active Substance: INSULIN LISPRO

REACTIONS (7)
  - Subdural haematoma [None]
  - Memory impairment [None]
  - Cardiac operation [None]
  - Weight decreased [None]
  - Drug effect decreased [None]
  - Feeling abnormal [None]
  - Disturbance in attention [None]
